FAERS Safety Report 21896583 (Version 2)
Quarter: 2023Q1

REPORT INFORMATION
  Report Type: Report from Study
  Country: CA (occurrence: CA)
  Receive Date: 20230123
  Receipt Date: 20230125
  Transmission Date: 20230418
  Serious: Yes (Hospitalization, Other)
  Sender: FDA-Public Use
  Company Number: CA-ABBVIE-4277440

PATIENT
  Age: 67 Year
  Sex: Male

DRUGS (10)
  1. SKYRIZI [Suspect]
     Active Substance: RISANKIZUMAB-RZAA
     Indication: Psoriasis
     Route: 058
     Dates: start: 20201013
  2. SKYRIZI [Suspect]
     Active Substance: RISANKIZUMAB-RZAA
     Route: 058
     Dates: start: 20200616, end: 20200714
  3. CLOBEX SHAMPOO 0.5% [Concomitant]
     Indication: Psoriasis
     Dosage: 1 APP
     Route: 061
     Dates: start: 20200428, end: 20201013
  4. MODERNA COVID-19 VACCINE [Concomitant]
     Active Substance: ELASOMERAN
     Indication: COVID-19 prophylaxis
     Dosage: FREQUENCY TEXT: ONCE
     Route: 030
     Dates: start: 20220107, end: 20220107
  5. BETAMETHASONE VALERATE [Concomitant]
     Active Substance: BETAMETHASONE VALERATE
     Indication: Psoriasis
     Dosage: 1 APP?LOTION?FREQUENCY TEXT: AS REQUIRED
     Route: 061
     Dates: start: 20200609
  6. DERMA-SMOOTHE/FS [Concomitant]
     Active Substance: FLUOCINOLONE ACETONIDE
     Indication: Psoriasis
     Dosage: FREQUENCY TEXT: AS REQUIRED
     Route: 061
     Dates: start: 20210113, end: 20210414
  7. PFIZER-BIONTECH COVID-19 VACCINE [Concomitant]
     Active Substance: TOZINAMERAN
     Indication: COVID-19 prophylaxis
     Dosage: FREQUENCY TEXT: ONCE
     Route: 030
     Dates: start: 20210429, end: 20210429
  8. PFIZER-BIONTECH COVID-19 VACCINE [Concomitant]
     Active Substance: TOZINAMERAN
     Indication: COVID-19 prophylaxis
     Dosage: 0.30 ML?FREQUENCY TEXT: ONCE
     Dates: start: 20210706, end: 20210706
  9. PFIZER-BIONTECH COVID-19 VACCINE [Concomitant]
     Active Substance: TOZINAMERAN
     Indication: COVID-19 prophylaxis
     Dosage: 0.30 ML
     Route: 030
     Dates: start: 20210706, end: 20210706
  10. CLOBEX SPRAY 0.5% [Concomitant]
     Indication: Psoriasis
     Dosage: APP
     Route: 061
     Dates: start: 20200609

REACTIONS (2)
  - Deep vein thrombosis [Recovered/Resolved]
  - Pulmonary embolism [Recovered/Resolved]

NARRATIVE: CASE EVENT DATE: 20221215
